FAERS Safety Report 10029369 (Version 3)
Quarter: 2014Q2

REPORT INFORMATION
  Report Type: Report from Study
  Country: FR (occurrence: FR)
  Receive Date: 20140322
  Receipt Date: 20140528
  Transmission Date: 20141212
  Serious: Yes (Hospitalization)
  Sender: FDA-Public Use
  Company Number: PHHY2014FR032471

PATIENT
  Age: 12 Year
  Sex: Male
  Weight: 51 kg

DRUGS (5)
  1. ICL670A [Suspect]
     Indication: HAEMOSIDEROSIS
     Dosage: 1500 MG, DAILY
     Route: 048
     Dates: start: 20080828, end: 20130716
  2. ICL670A [Suspect]
     Indication: SICKLE CELL ANAEMIA
  3. ORACILLINE [Concomitant]
     Indication: INFECTION PROPHYLAXIS
     Dosage: 100000 IU, BID
     Dates: start: 2003, end: 2003
  4. ZYMAD [Concomitant]
     Dosage: 80000 IU, TID
     Dates: start: 2000, end: 2000
  5. ZYMAD [Concomitant]
     Dosage: 1 DF, DAILY

REACTIONS (6)
  - Pyelonephritis [Recovered/Resolved]
  - Escherichia infection [Recovered/Resolved]
  - Hepatocellular injury [Recovered/Resolved]
  - Renal failure acute [Recovered/Resolved]
  - Renal failure [Recovered/Resolved]
  - Blood creatinine increased [Recovered/Resolved]
